FAERS Safety Report 25733624 (Version 1)
Quarter: 2025Q3

REPORT INFORMATION
  Report Type: Report from Study
  Country: US (occurrence: US)
  Receive Date: 20250828
  Receipt Date: 20250828
  Transmission Date: 20251021
  Serious: Yes (Death)
  Sender: ABBVIE
  Company Number: US-ABBVIE-6433850

PATIENT
  Age: 25 Year
  Sex: Male

DRUGS (3)
  1. VENCLEXTA [Suspect]
     Active Substance: VENETOCLAX
     Indication: Acute myeloid leukaemia recurrent
     Dosage: LAST ADMIN DATE: 2025
     Route: 048
     Dates: start: 20250711
  2. REVUFORJ [Concomitant]
     Active Substance: REVUMENIB CITRATE
     Indication: Acute myeloid leukaemia recurrent
     Dates: start: 20250711
  3. REVUFORJ [Concomitant]
     Active Substance: REVUMENIB CITRATE
     Indication: Acute myeloid leukaemia recurrent

REACTIONS (1)
  - Death [Fatal]

NARRATIVE: CASE EVENT DATE: 20250825
